FAERS Safety Report 7909340-2 (Version None)
Quarter: 2011Q4

REPORT INFORMATION
  Report Type: 
  Country: None (occurrence: None)
  Receive Date: 20111111
  Receipt Date: 20111108
  Transmission Date: 20120403
  Serious: Yes (Hospitalization, Other)
  Sender: FDA-Public Use
  Company Number: US-PFIZER INC-2009269914

PATIENT
  Sex: Female

DRUGS (9)
  1. ZOLOFT [Concomitant]
     Indication: DEPRESSION
     Dosage: UNK
     Dates: start: 20050101
  2. MORPHINE [Concomitant]
     Indication: PAIN
     Dosage: UNK
     Dates: start: 19990101
  3. IMITREX [Concomitant]
     Indication: HEADACHE
     Dosage: UNK
     Dates: start: 20040101, end: 20090101
  4. HYDROCODONE [Concomitant]
     Indication: PAIN
     Dosage: UNK
     Dates: start: 19990101
  5. XANAX [Concomitant]
     Indication: ANXIETY
     Dosage: UNK
     Dates: start: 20050101
  6. CHANTIX [Suspect]
     Indication: SMOKING CESSATION THERAPY
     Dosage: 0.5MG/1MG
     Dates: start: 20071001, end: 20071101
  7. GABAPENTIN [Concomitant]
     Indication: PAIN
     Dosage: UNK
     Dates: start: 19990101
  8. BUSPAR [Concomitant]
     Indication: ANXIETY
     Dosage: UNK
     Dates: start: 20050101
  9. PROMETHAZINE [Concomitant]
     Indication: NAUSEA
     Dosage: UNK
     Dates: start: 20050101

REACTIONS (5)
  - SUICIDE ATTEMPT [None]
  - DEPRESSION [None]
  - ANXIETY [None]
  - IRRITABILITY [None]
  - ABNORMAL BEHAVIOUR [None]
